FAERS Safety Report 24609717 (Version 1)
Quarter: 2024Q4

REPORT INFORMATION
  Report Type: Spontaneous
  Country: US (occurrence: US)
  Receive Date: 20241112
  Receipt Date: 20241112
  Transmission Date: 20250114
  Serious: No
  Sender: SANOFI AVENTIS
  Company Number: US-SA-2024SA324341

PATIENT
  Age: 58 Year
  Sex: Male
  Weight: 168.64 kg

DRUGS (11)
  1. DUPIXENT [Suspect]
     Active Substance: DUPILUMAB
     Indication: Dermatitis atopic
     Dosage: 300 MG, QOW
     Route: 058
  2. ALEVE [Concomitant]
     Active Substance: NAPROXEN SODIUM
  3. IRON [Concomitant]
     Active Substance: IRON
  4. TRIAMCINOLONE ACETONIDE [Concomitant]
     Active Substance: TRIAMCINOLONE ACETONIDE
  5. PENICILLIN V POTASSIUM [Concomitant]
     Active Substance: PENICILLIN V POTASSIUM
  6. NAPROXEN [Concomitant]
     Active Substance: NAPROXEN
  7. HYDROCHLOROTHIAZIDE [Concomitant]
     Active Substance: HYDROCHLOROTHIAZIDE
  8. LOSARTAN POTASSIUM [Concomitant]
     Active Substance: LOSARTAN POTASSIUM
  9. INDOMETHACIN [Concomitant]
     Active Substance: INDOMETHACIN
  10. PREDNISONE [Concomitant]
     Active Substance: PREDNISONE
  11. CEPHALEXIN [Concomitant]
     Active Substance: CEPHALEXIN

REACTIONS (7)
  - Dermatitis atopic [Unknown]
  - Dry skin [Unknown]
  - Skin weeping [Unknown]
  - Pruritus [Unknown]
  - Skin exfoliation [Unknown]
  - Inappropriate schedule of product administration [Unknown]
  - Drug effect less than expected [Unknown]
